FAERS Safety Report 7554709-1 (Version None)
Quarter: 2011Q2

REPORT INFORMATION
  Report Type: 
  Country: None (occurrence: None)
  Receive Date: 20110617
  Receipt Date: 20110613
  Transmission Date: 20111010
  Serious: Yes (Hospitalization)
  Sender: FDA-Public Use
  Company Number: US-ABBOTT-11P-163-0732069-00

PATIENT
  Sex: Male
  Weight: 172.52 kg

DRUGS (2)
  1. HUMIRA [Suspect]
     Route: 058
     Dates: start: 20110501, end: 20110501
  2. HUMIRA [Suspect]
     Indication: PSORIASIS
     Route: 058
     Dates: start: 20110501

REACTIONS (4)
  - FATIGUE [None]
  - CHEST PAIN [None]
  - ATRIAL FIBRILLATION [None]
  - DIZZINESS [None]
